FAERS Safety Report 9019731 (Version 2)
Quarter: 2013Q1

REPORT INFORMATION
  Report Type: Spontaneous
  Country: JP (occurrence: JP)
  Receive Date: 20130118
  Receipt Date: 20130207
  Transmission Date: 20140127
  Serious: Yes (Death, Other)
  Sender: FDA-Public Use
  Company Number: JP-PFIZER INC-2013019120

PATIENT
  Age: 7 Decade
  Sex: Male

DRUGS (1)
  1. HALCION [Suspect]
     Indication: SUICIDE ATTEMPT
     Dosage: 0.25 MG X 30 TABLETS
     Route: 048
     Dates: start: 201008

REACTIONS (2)
  - Completed suicide [Fatal]
  - Intentional overdose [Unknown]
